FAERS Safety Report 18920440 (Version 2)
Quarter: 2021Q1

REPORT INFORMATION
  Report Type: Other
  Country: US (occurrence: US)
  Receive Date: 20210222
  Receipt Date: 20210319
  Transmission Date: 20210420
  Serious: Yes (Other)
  Sender: FDA-Public Use
  Company Number: US-ROCHE-2425085

PATIENT
  Sex: Female
  Weight: 62.65 kg

DRUGS (12)
  1. ROBITUSSIN (GUAIFENESIN) [Suspect]
     Active Substance: GUAIFENESIN
     Indication: PRODUCT USED FOR UNKNOWN INDICATION
     Route: 065
     Dates: start: 202012, end: 202101
  2. ATORVASTATIN [Concomitant]
     Active Substance: ATORVASTATIN
     Route: 048
     Dates: start: 2017
  3. ACTEMRA [Suspect]
     Active Substance: TOCILIZUMAB
     Indication: SEASONAL ALLERGY
  4. ACTEMRA [Suspect]
     Active Substance: TOCILIZUMAB
  5. BRIMONIDINE TARTRATE. [Concomitant]
     Active Substance: BRIMONIDINE TARTRATE
     Indication: DRY EYE
     Route: 031
     Dates: start: 2019
  6. TYLENOL [Concomitant]
     Active Substance: ACETAMINOPHEN
     Indication: HEADACHE
     Route: 048
     Dates: start: 2001
  7. BUDESONIDE. [Concomitant]
     Active Substance: BUDESONIDE
     Indication: IRRITABLE BOWEL SYNDROME
     Route: 048
     Dates: start: 2019
  8. ACTEMRA [Suspect]
     Active Substance: TOCILIZUMAB
     Indication: GIANT CELL ARTERITIS
     Dosage: SYRINGE
     Route: 058
     Dates: start: 2019, end: 202011
  9. LEVAQUIN [Concomitant]
     Active Substance: LEVOFLOXACIN
  10. PREDNISONE. [Concomitant]
     Active Substance: PREDNISONE
  11. LATANOPROST. [Concomitant]
     Active Substance: LATANOPROST
     Indication: DRY EYE
     Route: 031
     Dates: start: 2019
  12. ACTEMRA [Suspect]
     Active Substance: TOCILIZUMAB

REACTIONS (10)
  - Asthenia [Unknown]
  - Sinusitis [Not Recovered/Not Resolved]
  - Dizziness [Recovered/Resolved]
  - Viral infection [Recovering/Resolving]
  - Lower respiratory tract congestion [Not Recovered/Not Resolved]
  - Respiratory disorder [Unknown]
  - Nasopharyngitis [Unknown]
  - Respiratory tract infection viral [Unknown]
  - Product dose omission issue [Unknown]
  - Myalgia [Unknown]

NARRATIVE: CASE EVENT DATE: 2019
